FAERS Safety Report 8188933-4 (Version None)
Quarter: 2012Q1

REPORT INFORMATION
  Report Type: 
  Country: None (occurrence: None)
  Receive Date: 20120306
  Receipt Date: 20120223
  Transmission Date: 20120608
  Serious: Yes (Hospitalization, Other)
  Sender: FDA-Public Use
  Company Number: US-ROCHE-788379

PATIENT
  Sex: Male
  Weight: 63.56 kg

DRUGS (4)
  1. ACCUTANE [Suspect]
     Route: 048
     Dates: start: 19980924, end: 19981201
  2. ACCUTANE [Suspect]
     Route: 048
     Dates: start: 19980501, end: 19980923
  3. ACCUTANE [Suspect]
     Indication: ACNE
  4. ADDERALL 5 [Concomitant]

REACTIONS (12)
  - DEPRESSION [None]
  - BIPOLAR DISORDER [None]
  - VESTIBULITIS [None]
  - INFLAMMATORY BOWEL DISEASE [None]
  - UPPER RESPIRATORY TRACT INFECTION [None]
  - COLITIS ULCERATIVE [None]
  - EMOTIONAL DISTRESS [None]
  - BRONCHITIS [None]
  - ANKYLOSING SPONDYLITIS [None]
  - EPISTAXIS [None]
  - WEIGHT DECREASED [None]
  - LIP DRY [None]
